FAERS Safety Report 8850702 (Version 1)
Quarter: 2012Q4

REPORT INFORMATION
  Report Type: 
  Country: US (occurrence: US)
  Receive Date: 20121019
  Receipt Date: 20121019
  Transmission Date: 20130627
  Serious: Yes (Other)
  Sender: FDA-Public Use
  Company Number: US-JNJFOC-20121008201

PATIENT
  Age: 57 Year
  Sex: Female

DRUGS (1)
  1. DURAGESIC [Suspect]
     Indication: PRODUCT USED FOR UNKNOWN INDICATION
     Route: 062

REACTIONS (4)
  - Abdominal adhesions [Unknown]
  - Adverse event [Not Recovered/Not Resolved]
  - Hyperhidrosis [Unknown]
  - Product quality issue [Unknown]
